FAERS Safety Report 23240959 (Version 1)
Quarter: 2023Q4

REPORT INFORMATION
  Report Type: Spontaneous
  Country: GB (occurrence: GB)
  Receive Date: 20231129
  Receipt Date: 20231129
  Transmission Date: 20240110
  Serious: Yes (Other)
  Sender: FDA-Public Use
  Company Number: GB-009507513-2311GBR009309

PATIENT
  Age: 52 Year
  Sex: Male

DRUGS (1)
  1. KEYTRUDA [Suspect]
     Active Substance: PEMBROLIZUMAB
     Indication: Adenocarcinoma of colon
     Dosage: 400MG (100ML), EVERY 6 WEEKS, 11 CYCLES TOTALLY, FORMULATION: VIAL
     Route: 042
     Dates: start: 20221123

REACTIONS (5)
  - Lower respiratory tract infection [Recovered/Resolved]
  - Enterostomy [Unknown]
  - Blood magnesium decreased [Unknown]
  - Short-bowel syndrome [Unknown]
  - Hypotension [Unknown]
